FAERS Safety Report 9712028 (Version 2)
Quarter: 2013Q4

REPORT INFORMATION
  Report Type: Spontaneous
  Country: US (occurrence: US)
  Receive Date: 20131126
  Receipt Date: 20131126
  Transmission Date: 20140711
  Serious: No
  Sender: FDA-Public Use
  Company Number: US-BRISTOL-MYERS SQUIBB COMPANY-19135664

PATIENT
  Age: 74 Year
  Sex: Female
  Weight: 73.92 kg

DRUGS (2)
  1. BYDUREON [Suspect]
     Indication: TYPE 2 DIABETES MELLITUS
     Route: 058
     Dates: start: 20130714, end: 20130721
  2. ACTOS [Concomitant]

REACTIONS (4)
  - Injection site pain [Unknown]
  - Hunger [Unknown]
  - Weight increased [Unknown]
  - Injection site nodule [Unknown]
